FAERS Safety Report 7005422-0 (Version None)
Quarter: 2010Q3

REPORT INFORMATION
  Report Type: 
  Country: None (occurrence: None)
  Receive Date: 20100921
  Receipt Date: 20100910
  Transmission Date: 20110219
  Serious: Yes (Hospitalization)
  Sender: FDA-Public Use
  Company Number: JP-BAXTER-2010BH021759

PATIENT
  Sex: Male
  Weight: 68 kg

DRUGS (4)
  1. EXTRANEAL [Suspect]
     Indication: CONGENITAL CYSTIC KIDNEY DISEASE
     Route: 033
  2. DIANEAL LOW CALCIUM W/ DEXTROSE 1.5% [Suspect]
     Indication: CONGENITAL CYSTIC KIDNEY DISEASE
     Route: 033
  3. DIANEAL 137 W/ DEXTROSE 2.5% IN PLASTIC CONTAINER [Suspect]
     Indication: CONGENITAL CYSTIC KIDNEY DISEASE
     Route: 033
  4. DIANEAL 137 W/ DEXTROSE 2.5% IN PLASTIC CONTAINER [Suspect]
     Route: 033

REACTIONS (3)
  - GASTROENTERITIS [None]
  - PERITONITIS BACTERIAL [None]
  - PYREXIA [None]
